FAERS Safety Report 22253920 (Version 6)
Quarter: 2023Q4

REPORT INFORMATION
  Report Type: Spontaneous
  Country: JP (occurrence: JP)
  Receive Date: 20230426
  Receipt Date: 20231204
  Transmission Date: 20240110
  Serious: Yes (Other)
  Sender: FDA-Public Use
  Company Number: JP-ASTELLAS-2023JP002055

PATIENT
  Age: 6 Decade
  Sex: Male

DRUGS (16)
  1. PADCEV [Suspect]
     Active Substance: ENFORTUMAB VEDOTIN-EJFV
     Indication: Product used for unknown indication
     Dosage: 90 MG(1MG/KG), UNKNOWN FREQ.
     Route: 065
     Dates: start: 20230207
  2. PADCEV [Suspect]
     Active Substance: ENFORTUMAB VEDOTIN-EJFV
     Dosage: 70 MG (0.75 MG/KG), UNKNOWN FREQ.
     Route: 065
     Dates: start: 20230406, end: 20230615
  3. PADCEV [Suspect]
     Active Substance: ENFORTUMAB VEDOTIN-EJFV
     Dosage: 70MG, OTHER, 2 DOSE ADMINISTRATION FOLLOWED BY 3 WEEKS SUSPENSION
     Route: 065
     Dates: start: 20230719, end: 20230927
  4. LOXOPROFEN SODIUM [Suspect]
     Active Substance: LOXOPROFEN SODIUM
     Indication: Groin pain
     Dosage: UNK UNK, UNKNOWN FREQ.
     Route: 048
     Dates: start: 20230131
  5. LOXOPROFEN SODIUM [Suspect]
     Active Substance: LOXOPROFEN SODIUM
     Dosage: UNK UNK, 4 TIMES DAILY
     Route: 048
  6. FEXOFENADINE HYDROCHLORIDE [Concomitant]
     Active Substance: FEXOFENADINE HYDROCHLORIDE
     Indication: Pruritus
     Dosage: UNK UNK, UNKNOWN FREQ.
     Route: 065
     Dates: start: 20230215
  7. KEYTRUDA [Concomitant]
     Active Substance: PEMBROLIZUMAB
     Indication: Product used for unknown indication
     Dosage: UNK UNK, UNKNOWN FREQ.
     Route: 065
  8. KEYTRUDA [Concomitant]
     Active Substance: PEMBROLIZUMAB
     Dosage: UNK UNK, UNKNOWN FREQ.
     Route: 065
  9. RINDERON V [Concomitant]
     Active Substance: BETAMETHASONE VALERATE
     Indication: Genital abscess
     Dosage: UNK UNK, UNKNOWN FREQ.
     Route: 065
     Dates: start: 20230428
  10. METFORMIN HYDROCHLORIDE [Concomitant]
     Active Substance: METFORMIN HYDROCHLORIDE
     Indication: Product used for unknown indication
     Dosage: UNK UNK, UNKNOWN FREQ.
     Route: 065
  11. LINAGLIPTIN [Concomitant]
     Active Substance: LINAGLIPTIN
     Indication: Product used for unknown indication
     Dosage: UNK UNK, UNKNOWN FREQ.
     Route: 065
  12. CALONAL [Concomitant]
     Active Substance: ACETAMINOPHEN
     Indication: Groin pain
     Dosage: UNK UNK, UNKNOWN FREQ.
     Route: 065
  13. TRAMADOL HYDROCHLORIDE [Concomitant]
     Active Substance: TRAMADOL HYDROCHLORIDE
     Indication: Malignant neoplasm progression
     Dosage: UNK UNK, UNKNOWN FREQ., ONLY FOR TWO DAYS
     Route: 048
     Dates: start: 20230713
  14. VOLTAREN [Concomitant]
     Active Substance: DICLOFENAC SODIUM
     Indication: Malignant neoplasm progression
     Dosage: UNK UNK, UNKNOWN FREQ.
     Route: 065
     Dates: start: 20230726
  15. TRAMADOL HYDROCHLORIDE [Concomitant]
     Active Substance: TRAMADOL HYDROCHLORIDE
     Indication: Malignant neoplasm progression
     Dosage: UNK UNK, AS NEEDED
     Route: 065
  16. HYDROMORPHONE HYDROCHLORIDE [Concomitant]
     Active Substance: HYDROMORPHONE HYDROCHLORIDE
     Indication: Pain management
     Dosage: UNK UNK, UNKNOWN FREQ.
     Route: 065

REACTIONS (12)
  - Genital abscess [Not Recovered/Not Resolved]
  - Oropharyngeal discomfort [Not Recovered/Not Resolved]
  - Malaise [Not Recovered/Not Resolved]
  - Haematuria [Not Recovered/Not Resolved]
  - Decreased appetite [Not Recovered/Not Resolved]
  - Taste disorder [Recovering/Resolving]
  - Pruritus [Unknown]
  - Skin disorder [Recovering/Resolving]
  - Rash [Recovered/Resolved]
  - Groin pain [Not Recovered/Not Resolved]
  - Dizziness [Recovered/Resolved]
  - Renal impairment [Not Recovered/Not Resolved]

NARRATIVE: CASE EVENT DATE: 20230208
